FAERS Safety Report 10456330 (Version 1)
Quarter: 2014Q3

REPORT INFORMATION
  Report Type: Spontaneous
  Country: IE (occurrence: IE)
  Receive Date: 20140916
  Receipt Date: 20140916
  Transmission Date: 20150326
  Serious: Yes (Death)
  Sender: FDA-Public Use
  Company Number: IE-AMGEN-IRLSP2014070220

PATIENT
  Age: 75 Year
  Sex: Male

DRUGS (4)
  1. LEUKERAN [Concomitant]
     Active Substance: CHLORAMBUCIL
     Dosage: UNK
  2. PREDNISOLONE. [Concomitant]
     Active Substance: PREDNISOLONE
     Dosage: UNK
  3. ZOTON [Concomitant]
     Active Substance: LANSOPRAZOLE
     Dosage: UNK
  4. ARANESP [Suspect]
     Active Substance: DARBEPOETIN ALFA
     Indication: WALDENSTROM^S MACROGLOBULINAEMIA
     Dosage: 500 MUG, Q3WK
     Route: 058

REACTIONS (1)
  - Death [Fatal]
